FAERS Safety Report 7972251-0 (Version None)
Quarter: 2011Q4

REPORT INFORMATION
  Report Type: 
  Country: None (occurrence: None)
  Receive Date: 20111213
  Receipt Date: 20111202
  Transmission Date: 20120403
  Serious: Yes (Hospitalization, Other)
  Sender: FDA-Public Use
  Company Number: US-BIOGENIDEC-2010BI015991

PATIENT
  Age: 55 Year
  Sex: Female

DRUGS (12)
  1. TYSABRI [Suspect]
     Indication: MULTIPLE SCLEROSIS
     Route: 042
     Dates: start: 20091214
  2. BENICAR [Concomitant]
     Route: 048
  3. INSULIN [Concomitant]
     Indication: DIABETES MELLITUS
  4. CYNACOBALAMIN [Concomitant]
     Route: 030
  5. ACIPHEX [Concomitant]
     Route: 048
  6. DYNACIRC [Concomitant]
     Route: 048
  7. NOVOLOG [Concomitant]
  8. AMARYL [Concomitant]
     Route: 048
  9. LANTUS [Concomitant]
  10. LEXAPRO [Concomitant]
  11. CLONIDINE HCL [Concomitant]
     Route: 048
  12. LABETALOL HCL [Concomitant]
     Route: 048

REACTIONS (17)
  - VASCULAR OCCLUSION [None]
  - MEDICAL DEVICE COMPLICATION [None]
  - HYPERTENSIVE EMERGENCY [None]
  - POST PROCEDURAL COMPLICATION [None]
  - PERIPHERAL VASCULAR DISORDER [None]
  - ASTHENIA [None]
  - PRURITUS [None]
  - PARAESTHESIA [None]
  - DEPRESSED MOOD [None]
  - MENTAL IMPAIRMENT [None]
  - NERVOUSNESS [None]
  - EMBOLIC STROKE [None]
  - HEMIPARESIS [None]
  - BLOOD PRESSURE ABNORMAL [None]
  - DIABETES MELLITUS [None]
  - WOUND DEHISCENCE [None]
  - LEG AMPUTATION [None]
